FAERS Safety Report 15815246 (Version 5)
Quarter: 2020Q3

REPORT INFORMATION
  Report Type: Spontaneous
  Country: JP (occurrence: JP)
  Receive Date: 20190112
  Receipt Date: 20200918
  Transmission Date: 20201102
  Serious: Yes (Death, Other)
  Sender: FDA-Public Use
  Company Number: JP-B.I. PHARMACEUTICALS,INC./RIDGEFIELD-2019-NB-000068

PATIENT
  Age: 73 Year
  Sex: Female

DRUGS (3)
  1. GILOTRIF [Suspect]
     Active Substance: AFATINIB
     Indication: LUNG ADENOCARCINOMA
     Route: 048
     Dates: start: 201802
  2. GILOTRIF [Suspect]
     Active Substance: AFATINIB
     Route: 048
  3. GILOTRIF [Suspect]
     Active Substance: AFATINIB
     Indication: LUNG ADENOCARCINOMA
     Route: 048
     Dates: start: 201802

REACTIONS (7)
  - Thrombophlebitis migrans [Unknown]
  - Diarrhoea [Recovering/Resolving]
  - Lung adenocarcinoma [Fatal]
  - Hydronephrosis [Unknown]
  - Retroperitoneal neoplasm metastatic [Fatal]
  - Duodenal obstruction [Unknown]
  - Cerebral infarction [Unknown]

NARRATIVE: CASE EVENT DATE: 201806
